FAERS Safety Report 14309255 (Version 4)
Quarter: 2017Q4

REPORT INFORMATION
  Report Type: Report from Study
  Country: MX (occurrence: MX)
  Receive Date: 20171220
  Receipt Date: 20171227
  Transmission Date: 20180321
  Serious: Yes (Other)
  Sender: FDA-Public Use
  Company Number: PHHY2017MX183103

PATIENT
  Age: 79 Year
  Sex: Female
  Weight: 51 kg

DRUGS (8)
  1. PREGABALIN. [Concomitant]
     Active Substance: PREGABALIN
     Indication: DIABETIC NEUROPATHY
     Dosage: 75 MG, UNK
     Route: 065
  2. XILIARXS-DUO [Suspect]
     Active Substance: METFORMIN HYDROCHLORIDE\VILDAGLIPTIN
     Dosage: 1 DF (50/850 MG), UNK (1 TAB. IN A DAY AND AS REQUIRED 1/2 TAB. AT NIGHT OR FULL TAB. AT IGHT)
     Route: 048
     Dates: start: 201706
  3. METOPROLOL. [Suspect]
     Active Substance: METOPROLOL
     Indication: HYPERTENSION
     Dosage: 0.5 DF (100 MG), QD
     Route: 065
  4. XILIARXS-DUO [Suspect]
     Active Substance: METFORMIN HYDROCHLORIDE\VILDAGLIPTIN
     Indication: BLOOD GLUCOSE ABNORMAL
     Dosage: (METFORMIN 850 MG, VILDAGLIPTIN 50 MG) 1 IN THE MORNING AND HALF IN THE NIGHT
     Route: 065
  5. EDARBYCLOR [Concomitant]
     Active Substance: AZILSARTAN KAMEDOXOMIL\CHLORTHALIDONE
     Indication: HYPERTENSION
     Dosage: 1 DF (80/12.5 MG), UNK
     Route: 065
     Dates: start: 2016
  6. OMEPRAZOLE. [Concomitant]
     Active Substance: OMEPRAZOLE
     Indication: PRODUCT USED FOR UNKNOWN INDICATION
     Dosage: 20 MG, QD
     Route: 065
  7. XILIARXS-DUO [Suspect]
     Active Substance: METFORMIN HYDROCHLORIDE\VILDAGLIPTIN
     Dosage: 1 DF (1 IN THE MORNING AND 1 IN THE NIGHT), BID
     Route: 065
  8. ADALAT [Concomitant]
     Active Substance: NIFEDIPINE
     Indication: HYPERTENSION
     Dosage: 60 MG, UNK
     Route: 065
     Dates: start: 2015

REACTIONS (18)
  - Fatigue [Recovered/Resolved]
  - Hypoaesthesia [Not Recovered/Not Resolved]
  - Urinary tract infection [Unknown]
  - Blood glucose increased [Not Recovered/Not Resolved]
  - Herpes zoster [Unknown]
  - Hypoglycaemia [Unknown]
  - Diabetic nephropathy [Unknown]
  - Diabetic neuropathy [Unknown]
  - Somnolence [Recovered/Resolved]
  - Diabetes mellitus [Unknown]
  - Drug hypersensitivity [Unknown]
  - Hyperhidrosis [Recovered/Resolved]
  - Dry skin [Recovered/Resolved]
  - Pruritus [Recovered/Resolved]
  - Blood glucose fluctuation [Unknown]
  - Thyroid disorder [Unknown]
  - Dry mouth [Recovered/Resolved]
  - Wrong technique in product usage process [Unknown]

NARRATIVE: CASE EVENT DATE: 20170909
